FAERS Safety Report 13923616 (Version 1)
Quarter: 2017Q3

REPORT INFORMATION
  Report Type: Spontaneous
  Country: US (occurrence: US)
  Receive Date: 20170830
  Receipt Date: 20170830
  Transmission Date: 20171127
  Serious: Yes (Hospitalization)
  Sender: FDA-Public Use
  Company Number: None

PATIENT
  Age: 53 Year
  Sex: Female
  Weight: 60.75 kg

DRUGS (2)
  1. XYZAL [Suspect]
     Active Substance: LEVOCETIRIZINE DIHYDROCHLORIDE
     Indication: SEASONAL ALLERGY
     Route: 048
     Dates: start: 20170501, end: 20170505
  2. VITAMIN D [Concomitant]
     Active Substance: CHOLECALCIFEROL

REACTIONS (9)
  - Thyroid pain [None]
  - Hyperthyroidism [None]
  - Dysphagia [None]
  - Ear pain [None]
  - Lymphadenopathy [None]
  - Pyrexia [None]
  - Thyroiditis acute [None]
  - Insomnia [None]
  - Hypothyroidism [None]

NARRATIVE: CASE EVENT DATE: 20170501
